FAERS Safety Report 16692116 (Version 1)
Quarter: 2019Q3

REPORT INFORMATION
  Report Type: Spontaneous
  Country: US (occurrence: US)
  Receive Date: 20190812
  Receipt Date: 20190812
  Transmission Date: 20191004
  Serious: Yes (Other)
  Sender: FDA-Public Use
  Company Number: US-ROCHE-2374020

PATIENT
  Age: 59 Year
  Sex: Male

DRUGS (12)
  1. METHOTREXATE. [Concomitant]
     Active Substance: METHOTREXATE
     Route: 065
  2. FOLIC ACID. [Concomitant]
     Active Substance: FOLIC ACID
     Route: 065
  3. FORTEO [Concomitant]
     Active Substance: TERIPARATIDE
     Route: 065
  4. D3 VITAMIN [Concomitant]
  5. METFORMIN [Concomitant]
     Active Substance: METFORMIN HYDROCHLORIDE
     Route: 065
  6. VITAMIN B12 [Concomitant]
     Active Substance: CYANOCOBALAMIN
  7. DIVALPROEX [Concomitant]
     Active Substance: DIVALPROEX SODIUM
     Route: 065
  8. HYDROXYCHLOROQUINE [Concomitant]
     Active Substance: HYDROXYCHLOROQUINE
     Route: 065
  9. ATORVASTATIN [Concomitant]
     Active Substance: ATORVASTATIN
     Route: 065
  10. DULOXETINE. [Concomitant]
     Active Substance: DULOXETINE
     Route: 065
  11. CALCIUM [Concomitant]
     Active Substance: CALCIUM
  12. RITUXAN [Suspect]
     Active Substance: RITUXIMAB
     Indication: RHEUMATOID ARTHRITIS
     Route: 065
     Dates: start: 20190410

REACTIONS (14)
  - Infusion related reaction [Unknown]
  - Hot flush [Not Recovered/Not Resolved]
  - Tongue exfoliation [Recovering/Resolving]
  - Arthralgia [Unknown]
  - Loss of consciousness [Unknown]
  - Cold sweat [Unknown]
  - Pain [Unknown]
  - Skin burning sensation [Unknown]
  - Back pain [Unknown]
  - Agnosia [Unknown]
  - Neck surgery [Unknown]
  - Nervousness [Unknown]
  - Confusional state [Unknown]
  - Hyperhidrosis [Unknown]

NARRATIVE: CASE EVENT DATE: 20190501
